FAERS Safety Report 11709494 (Version 2)
Quarter: 2015Q4

REPORT INFORMATION
  Report Type: Spontaneous
  Country: US (occurrence: US)
  Receive Date: 20151104
  Receipt Date: 20151110
  Transmission Date: 20160304
  Serious: No
  Sender: FDA-Public Use
  Company Number: US-ELI_LILLY_AND_COMPANY-US201106007781

PATIENT
  Sex: Female

DRUGS (3)
  1. FORTEO [Suspect]
     Active Substance: TERIPARATIDE
     Dosage: 20 UG, UNK
  2. FORTEO [Suspect]
     Active Substance: TERIPARATIDE
     Dosage: 20 UG, UNK
  3. FORTEO [Suspect]
     Active Substance: TERIPARATIDE
     Indication: OSTEOPOROSIS
     Dosage: 20 UG, UNK
     Dates: start: 201106

REACTIONS (10)
  - Pain in extremity [Unknown]
  - Dyspepsia [Unknown]
  - Gastrointestinal disorder [Unknown]
  - Back pain [Not Recovered/Not Resolved]
  - Dizziness [Unknown]
  - Fatigue [Not Recovered/Not Resolved]
  - Muscle spasms [Unknown]
  - Bone pain [Unknown]
  - Weight increased [Unknown]
  - Arthralgia [Unknown]
